FAERS Safety Report 6598518-9 (Version None)
Quarter: 2010Q1

REPORT INFORMATION
  Report Type: 
  Country: None (occurrence: None)
  Receive Date: 20100224
  Receipt Date: 20050110
  Transmission Date: 20100710
  Serious: No
  Sender: FDA-Public Use
  Company Number: US-ALLERGAN-200500531

PATIENT
  Age: 38 Year
  Sex: Female
  Weight: 59.91 kg

DRUGS (3)
  1. BOTOX COSMETIC [Suspect]
     Indication: SKIN WRINKLING
     Dosage: 23UNITS, PRN
     Route: 030
     Dates: end: 20050106
  2. CELEXA [Concomitant]
     Indication: DEPRESSION
     Dosage: 40MG, QD
     Route: 065
  3. NEXIUM [Concomitant]
     Indication: GASTROOESOPHAGEAL REFLUX DISEASE
     Dosage: 40MG, QD
     Route: 065

REACTIONS (2)
  - DRUG INEFFECTIVE [None]
  - EYELID PTOSIS [None]
